FAERS Safety Report 23028111 (Version 1)
Quarter: 2023Q4

REPORT INFORMATION
  Report Type: Spontaneous
  Country: CN (occurrence: CN)
  Receive Date: 20231004
  Receipt Date: 20231004
  Transmission Date: 20240109
  Serious: Yes (Death, Other)
  Sender: FDA-Public Use
  Company Number: CN-AMGEN-CHNSP2023170795

PATIENT

DRUGS (4)
  1. CINACALCET HYDROCHLORIDE [Suspect]
     Active Substance: CINACALCET HYDROCHLORIDE
     Indication: Hyperparathyroidism secondary
     Dosage: 25-100 MILLIGRAM
     Route: 048
  2. VITAMIN D [Concomitant]
     Active Substance: VITAMIN D NOS
  3. Phosphates [Concomitant]
  4. CALCIUM [Concomitant]
     Active Substance: CALCIUM

REACTIONS (19)
  - Adverse drug reaction [Fatal]
  - Electrocardiogram QT prolonged [Unknown]
  - Connective tissue disorder [Unknown]
  - Nervous system disorder [Unknown]
  - Musculoskeletal disorder [Unknown]
  - Hypoproteinaemia [Unknown]
  - Abdominal discomfort [Unknown]
  - Abdominal distension [Unknown]
  - Flatulence [Unknown]
  - Gastrooesophageal reflux disease [Unknown]
  - Decreased appetite [Unknown]
  - Calcium ionised decreased [Unknown]
  - Hypocalcaemia [Unknown]
  - Nausea [Unknown]
  - Vomiting [Unknown]
  - Diarrhoea [Unknown]
  - Abdominal pain upper [Unknown]
  - Muscle spasms [Unknown]
  - Dizziness [Unknown]
